FAERS Safety Report 18421959 (Version 1)
Quarter: 2020Q4

REPORT INFORMATION
  Report Type: Spontaneous
  Country: US (occurrence: US)
  Receive Date: 20201023
  Receipt Date: 20201023
  Transmission Date: 20210114
  Serious: No
  Sender: FDA-Public Use
  Company Number: US-PFIZER INC-2020409885

PATIENT
  Sex: Female

DRUGS (13)
  1. NUBAIN [Suspect]
     Active Substance: NALBUPHINE HYDROCHLORIDE
  2. PRILOSEC [Suspect]
     Active Substance: OMEPRAZOLE MAGNESIUM
  3. XANAX [Suspect]
     Active Substance: ALPRAZOLAM
     Dosage: UNK
     Route: 065
  4. SEROQUEL [Suspect]
     Active Substance: QUETIAPINE FUMARATE
  5. BUDEPRION [Suspect]
     Active Substance: BUPROPION HYDROCHLORIDE
  6. AMBIEN [Suspect]
     Active Substance: ZOLPIDEM TARTRATE
  7. REMERON [Suspect]
     Active Substance: MIRTAZAPINE
  8. TRAZODONE [Suspect]
     Active Substance: TRAZODONE HYDROCHLORIDE
  9. ULTRAM [Suspect]
     Active Substance: TRAMADOL HYDROCHLORIDE
  10. MORPHINE SULFATE. [Suspect]
     Active Substance: MORPHINE SULFATE
  11. STELAZINE [Suspect]
     Active Substance: TRIFLUOPERAZINE HYDROCHLORIDE
  12. METOPROLOL TARTRATE. [Suspect]
     Active Substance: METOPROLOL TARTRATE
  13. LEXAPRO [Suspect]
     Active Substance: ESCITALOPRAM OXALATE

REACTIONS (1)
  - Drug hypersensitivity [Unknown]
